FAERS Safety Report 23719661 (Version 1)
Quarter: 2024Q2

REPORT INFORMATION
  Report Type: Spontaneous
  Country: US (occurrence: US)
  Receive Date: 20240408
  Receipt Date: 20240408
  Transmission Date: 20240715
  Serious: Yes (Hospitalization)
  Sender: FDA-Public Use
  Company Number: US-BRISTOL-MYERS SQUIBB COMPANY-2024-046891

PATIENT
  Age: 67 Year
  Sex: Male

DRUGS (1)
  1. IDHIFA [Suspect]
     Active Substance: ENASIDENIB MESYLATE
     Indication: Myelodysplastic syndrome with single lineage dysplasia
     Dosage: TAKE TWO TABLETS BY MOUTH DAILY
     Route: 048
     Dates: start: 20240304

REACTIONS (2)
  - Hospitalisation [Unknown]
  - Off label use [Unknown]
